FAERS Safety Report 5319371-7 (Version None)
Quarter: 2007Q2

REPORT INFORMATION
  Report Type: 
  Country: None (occurrence: None)
  Receive Date: 20070508
  Receipt Date: 20070430
  Transmission Date: 20071010
  Serious: Yes (Hospitalization)
  Sender: FDA-Public Use
  Company Number: US-ELI_LILLY_AND_COMPANY-US200705000246

PATIENT
  Age: 73 Year
  Sex: Male

DRUGS (15)
  1. BYETTA [Suspect]
     Indication: DIABETES MELLITUS NON-INSULIN-DEPENDENT
     Dosage: 5 UG, 2/D
     Route: 058
     Dates: start: 20070101, end: 20070101
  2. BYETTA [Suspect]
     Dosage: 10 UG, 2/D
     Route: 058
     Dates: start: 20070101
  3. GLIPIZIDE [Concomitant]
     Indication: DIABETES MELLITUS NON-INSULIN-DEPENDENT
     Dosage: 10 MG, 2/D
     Route: 048
  4. LANTUS [Concomitant]
     Indication: DIABETES MELLITUS NON-INSULIN-DEPENDENT
     Dosage: 20 U, EACH EVENING
     Route: 058
  5. DIGOXIN [Concomitant]
     Indication: CARDIAC DISORDER
     Dosage: 0.25 MG, DAILY (1/D)
     Route: 048
  6. ZOCOR [Concomitant]
     Indication: BLOOD CHOLESTEROL
     Dosage: 20 MG, DAILY (1/D)
     Route: 048
  7. COUMADIN [Concomitant]
     Indication: ANTICOAGULANT THERAPY
     Dosage: 2.5 MG, 3/W
     Route: 048
  8. COUMADIN [Concomitant]
     Dosage: 5 MG, 4/W
     Route: 048
  9. VASOTEC [Concomitant]
     Indication: CARDIAC DISORDER
     Dosage: 10 MG, 2/D
     Route: 048
  10. ASPIRIN [Concomitant]
     Indication: CARDIAC DISORDER
     Dosage: 81 MG, DAILY (1/D)
     Route: 048
  11. LASIX [Concomitant]
     Indication: FLUID RETENTION
     Dosage: 40 MG, 2/D
     Route: 048
  12. FLOMAX [Concomitant]
     Indication: URINARY TRACT DISORDER
     Dosage: 0.4 MG, DAILY (1/D)
     Route: 048
     Dates: start: 20070401
  13. METOPROLOL SUCCINATE [Concomitant]
     Indication: BLOOD PRESSURE ABNORMAL
     Dosage: 50 MG, 2/D
     Route: 048
  14. LEVOTHYROXINE SODIUM [Concomitant]
     Indication: THYROID DISORDER
     Dosage: 25 MG, DAILY (1/D)
     Route: 048
  15. THEOPHYLLINE [Concomitant]
     Indication: RESPIRATORY DISORDER
     Dosage: 400 MG, DAILY (1/D)
     Route: 048

REACTIONS (1)
  - CARDIAC DISORDER [None]
